FAERS Safety Report 25651403 (Version 1)
Quarter: 2025Q3

REPORT INFORMATION
  Report Type: Spontaneous
  Country: EU (occurrence: EU)
  Receive Date: 20250806
  Receipt Date: 20250806
  Transmission Date: 20251021
  Serious: Yes (Other)
  Sender: ELI LILLY AND COMPANY
  Company Number: None

PATIENT
  Age: 30 Year
  Sex: Female
  Weight: 98 kg

DRUGS (2)
  1. MOUNJARO [Interacting]
     Active Substance: TIRZEPATIDE
     Indication: Glucose tolerance impaired
     Dosage: 2.5 MG, WEEKLY (1/W)
     Route: 058
     Dates: start: 20250706, end: 20250713
  2. DESOGESTREL [Interacting]
     Active Substance: DESOGESTREL
     Indication: Contraception
     Dosage: 75 UG, DAILY
     Route: 048
     Dates: start: 202304

REACTIONS (2)
  - Dysmenorrhoea [Not Recovered/Not Resolved]
  - Off label use [Unknown]

NARRATIVE: CASE EVENT DATE: 20250709
